FAERS Safety Report 22041845 (Version 3)
Quarter: 2025Q2

REPORT INFORMATION
  Report Type: Spontaneous
  Country: FR (occurrence: FR)
  Receive Date: 20230227
  Receipt Date: 20250425
  Transmission Date: 20250717
  Serious: Yes (Life-Threatening, Other)
  Sender: VERTEX
  Company Number: None

PATIENT
  Age: 39 Year
  Sex: Female
  Weight: 58 kg

DRUGS (11)
  1. ELEXACAFTOR\IVACAFTOR\TEZACAFTOR [Suspect]
     Active Substance: ELEXACAFTOR\IVACAFTOR\TEZACAFTOR
     Indication: Cystic fibrosis
     Dosage: 2 TABS (75MG IVACAFTOR/50MG TEZACAFTOR/100MG ELEXACAFTOR)
     Route: 048
     Dates: start: 20220617
  2. KALYDECO [Suspect]
     Active Substance: IVACAFTOR
     Indication: Cystic fibrosis
     Dosage: 1TAB (150 MG)
     Route: 048
     Dates: start: 20220617
  3. PULMOZYME [Concomitant]
     Active Substance: DORNASE ALFA
  4. PANCRELIPASE [Concomitant]
     Active Substance: PANCRELIPASE
  5. SYMBICORT [Concomitant]
     Active Substance: BUDESONIDE\FORMOTEROL FUMARATE DIHYDRATE
  6. .ALPHA.-TOCOPHEROL ACETATE, D- [Concomitant]
     Active Substance: .ALPHA.-TOCOPHEROL ACETATE, D-
  7. ESOMEPRAZOLE [Concomitant]
     Active Substance: ESOMEPRAZOLE
  8. BRICANYL [Concomitant]
     Active Substance: TERBUTALINE SULFATE
  9. CHOLECALCIFEROL [Concomitant]
     Active Substance: CHOLECALCIFEROL
  10. XANAX [Concomitant]
     Active Substance: ALPRAZOLAM
  11. DOLIPRANE PRO [Concomitant]

REACTIONS (6)
  - Self-destructive behaviour [Recovered/Resolved]
  - Suicide attempt [Recovered/Resolved]
  - Suicidal ideation [Unknown]
  - Depressed mood [Recovering/Resolving]
  - Insomnia [Recovered/Resolved]
  - Diarrhoea [Unknown]

NARRATIVE: CASE EVENT DATE: 20220101
